FAERS Safety Report 8216522 (Version 3)
Quarter: 2015Q3

REPORT INFORMATION
  Report Type: Spontaneous
  Country: US (occurrence: US)
  Receive Date: 20111031
  Receipt Date: 20150925
  Transmission Date: 20151125
  Serious: Yes (Hospitalization, Other)
  Sender: FDA-Public Use
  Company Number: US-ASTRAZENECA-2011SE63036

PATIENT
  Age: 69 Year
  Sex: Female

DRUGS (3)
  1. NEXIUM [Concomitant]
     Active Substance: ESOMEPRAZOLE MAGNESIUM
  2. PROAIR HFA [Concomitant]
     Active Substance: ALBUTEROL SULFATE
  3. SYMBICORT [Suspect]
     Active Substance: BUDESONIDE\FORMOTEROL FUMARATE DIHYDRATE
     Route: 055

REACTIONS (8)
  - Hypoacusis [Unknown]
  - Pneumonia [Unknown]
  - Gait disturbance [Unknown]
  - Drug dose omission [Unknown]
  - Brain neoplasm malignant [Unknown]
  - Bronchitis [Unknown]
  - Asthma [Unknown]
  - Memory impairment [Unknown]

NARRATIVE: CASE EVENT DATE: 20110531
